FAERS Safety Report 18630366 (Version 2)
Quarter: 2020Q4

REPORT INFORMATION
  Report Type: Spontaneous
  Country: US (occurrence: US)
  Receive Date: 20201218
  Receipt Date: 20201222
  Transmission Date: 20210114
  Serious: No
  Sender: FDA-Public Use
  Company Number: US-ENDO PHARMACEUTICALS INC-2019-106045

PATIENT
  Sex: Male
  Weight: 102.4 kg

DRUGS (4)
  1. XIAFLEX [Suspect]
     Active Substance: COLLAGENASE CLOSTRIDIUM HISTOLYTICUM
     Indication: PEYRONIE^S DISEASE
     Dosage: UNK UNKNOWN, FIRST CYCLE; INJECTION ONE
     Route: 026
     Dates: start: 2019
  2. XIAFLEX [Suspect]
     Active Substance: COLLAGENASE CLOSTRIDIUM HISTOLYTICUM
     Dosage: UNK UNKNOWN, CYCLE TWO, INJECTION TWO
     Route: 026
     Dates: start: 2019
  3. XIAFLEX [Suspect]
     Active Substance: COLLAGENASE CLOSTRIDIUM HISTOLYTICUM
     Dosage: UNK UNKNOWN, CYCLE TWO, INJECTION ONE
     Route: 026
     Dates: start: 2019
  4. XIAFLEX [Suspect]
     Active Substance: COLLAGENASE CLOSTRIDIUM HISTOLYTICUM
     Dosage: UNK UNKNOWN, FIRST CYCLE; INJECTION TWO
     Route: 026
     Dates: start: 2019

REACTIONS (9)
  - Haemorrhage [Unknown]
  - Penile haematoma [Recovered/Resolved]
  - Dyspareunia [Unknown]
  - Swelling [Unknown]
  - Penile size reduced [Unknown]
  - Penile contusion [Recovered/Resolved]
  - Penile pain [Recovered/Resolved]
  - Skin discolouration [Unknown]
  - Erectile dysfunction [Unknown]

NARRATIVE: CASE EVENT DATE: 2019
